FAERS Safety Report 17811726 (Version 1)
Quarter: 2020Q2

REPORT INFORMATION
  Report Type: Spontaneous
  Country: US (occurrence: US)
  Receive Date: 20200521
  Receipt Date: 20200521
  Transmission Date: 20200714
  Serious: Yes (Other)
  Sender: FDA-Public Use
  Company Number: None

PATIENT
  Age: 61 Year
  Sex: Female

DRUGS (3)
  1. ESTRADIOL. [Concomitant]
     Active Substance: ESTRADIOL
  2. ZOCOR [Concomitant]
     Active Substance: SIMVASTATIN
  3. BUPROPRION 300MG ANCHEN [Suspect]
     Active Substance: BUPROPION HYDROCHLORIDE
     Indication: DEPRESSION
     Route: 048

REACTIONS (3)
  - Therapeutic response decreased [None]
  - Product substitution issue [None]
  - Depression [None]

NARRATIVE: CASE EVENT DATE: 20190506
